FAERS Safety Report 4938991-2 (Version None)
Quarter: 2006Q1

REPORT INFORMATION
  Report Type: 
  Country: None (occurrence: None)
  Receive Date: 20060309
  Receipt Date: 20060202
  Transmission Date: 20060701
  Serious: Yes (Other)
  Sender: FDA-Public Use
  Company Number: US-MERCK-0602USA01634

PATIENT
  Sex: Female
  Weight: 148 kg

DRUGS (1)
  1. VIOXX [Suspect]
     Indication: CELLULITIS
     Route: 048
     Dates: start: 19990101, end: 20030101

REACTIONS (4)
  - CARDIAC DISORDER [None]
  - CARDIAC FAILURE [None]
  - EMOTIONAL DISORDER [None]
  - THROMBOSIS [None]
